FAERS Safety Report 8959613 (Version 2)
Quarter: 2013Q1

REPORT INFORMATION
  Report Type: Spontaneous
  Country: AR (occurrence: AR)
  Receive Date: 20121211
  Receipt Date: 20130128
  Transmission Date: 20140127
  Serious: Yes (Hospitalization, Other)
  Sender: FDA-Public Use
  Company Number: PHHY2012AR113844

PATIENT
  Sex: Female

DRUGS (2)
  1. EXFORGE [Suspect]
     Indication: HYPERTENSION
     Dosage: 1 DF(160/10 MG), DAILY
     Route: 048
     Dates: start: 20121129, end: 20121201
  2. EXFORGE [Suspect]
     Dosage: 1 DF(160/10 MG), DAILY
     Route: 048
     Dates: start: 20121206

REACTIONS (3)
  - Diabetes mellitus [Recovering/Resolving]
  - Hypertension [Recovered/Resolved]
  - Renal disorder [Not Recovered/Not Resolved]
